FAERS Safety Report 21943110 (Version 1)
Quarter: 2023Q1

REPORT INFORMATION
  Report Type: Spontaneous
  Country: ZA (occurrence: ZA)
  Receive Date: 20230202
  Receipt Date: 20230202
  Transmission Date: 20230418
  Serious: Yes (Hospitalization)
  Sender: FDA-Public Use
  Company Number: ZA-002147023-NVSC2023ZA015992

PATIENT
  Age: 35 Year
  Sex: Female

DRUGS (2)
  1. FINGOLIMOD HYDROCHLORIDE [Suspect]
     Active Substance: FINGOLIMOD HYDROCHLORIDE
     Indication: Relapsing-remitting multiple sclerosis
     Dosage: 0.5 MG, QD
     Route: 048
     Dates: start: 20180501, end: 20200201
  2. FINGOLIMOD HYDROCHLORIDE [Suspect]
     Active Substance: FINGOLIMOD HYDROCHLORIDE
     Indication: Multiple sclerosis

REACTIONS (7)
  - Multiple sclerosis relapse [Unknown]
  - Muscular weakness [Unknown]
  - Gait disturbance [Unknown]
  - Hemiparesis [Unknown]
  - Paraesthesia [Unknown]
  - Optic neuritis [Unknown]
  - Dysarthria [Unknown]

NARRATIVE: CASE EVENT DATE: 20190701
